FAERS Safety Report 23448155 (Version 4)
Quarter: 2024Q1

REPORT INFORMATION
  Report Type: Other
  Country: US (occurrence: US)
  Receive Date: 20240126
  Receipt Date: 20240301
  Transmission Date: 20240409
  Serious: No
  Sender: FDA-Public Use
  Company Number: US-TRAVERE-2023TVT00877

PATIENT
  Sex: Female

DRUGS (10)
  1. FILSPARI [Suspect]
     Active Substance: SPARSENTAN
     Indication: IgA nephropathy
     Dosage: 200MG TABLETS TAKE 2 TABS DAILY
     Route: 048
     Dates: start: 20231114
  2. FILSPARI [Suspect]
     Active Substance: SPARSENTAN
     Indication: Chronic kidney disease
     Route: 048
  3. AMOXICILLIN [Concomitant]
     Active Substance: AMOXICILLIN
  4. NORETHINDRONE [Concomitant]
     Active Substance: NORETHINDRONE
  5. DEPO-PROVERA [Concomitant]
     Active Substance: MEDROXYPROGESTERONE ACETATE
  6. ATORVASTATIN [Concomitant]
     Active Substance: ATORVASTATIN
  7. JARDIANCE [Concomitant]
     Active Substance: EMPAGLIFLOZIN
  8. CLARITIN [Concomitant]
     Active Substance: LORATADINE
  9. CYANOCOBALAMIN\FOLIC ACID\PYRIDOXINE HYDROCHLORIDE [Concomitant]
     Active Substance: CYANOCOBALAMIN\FOLIC ACID\PYRIDOXINE HYDROCHLORIDE
  10. GLYXAMBI [Concomitant]
     Active Substance: EMPAGLIFLOZIN\LINAGLIPTIN

REACTIONS (13)
  - Asthenia [Unknown]
  - Dizziness [Unknown]
  - Muscle tightness [Unknown]
  - Feeling abnormal [Unknown]
  - Product dose omission in error [Unknown]
  - COVID-19 [Unknown]
  - Ear infection [Unknown]
  - Hyperhidrosis [Unknown]
  - Blood pressure decreased [Recovered/Resolved]
  - Fatigue [Unknown]
  - Heart rate increased [Unknown]
  - Depression [Unknown]
  - Blood pressure increased [None]
